FAERS Safety Report 24426492 (Version 3)
Quarter: 2025Q4

REPORT INFORMATION
  Report Type: Spontaneous
  Country: US (occurrence: US)
  Receive Date: 20241011
  Receipt Date: 20251127
  Transmission Date: 20260118
  Serious: No
  Sender: ROCHE
  Company Number: US-ROCHE-10000102028

PATIENT
  Sex: Female

DRUGS (6)
  1. XOLAIR PFS [Suspect]
     Active Substance: OMALIZUMAB
     Indication: Senile osteoporosis
     Dosage: 75 MG 0.5 ML 1 SYRINGE
     Route: 058
  2. XOLAIR PFS [Suspect]
     Active Substance: OMALIZUMAB
     Route: 058
  3. XOLAIR PFS [Suspect]
     Active Substance: OMALIZUMAB
     Route: 058
  4. BREO ELLIPTA [Concomitant]
     Active Substance: FLUTICASONE FUROATE\VILANTEROL TRIFENATATE
  5. MONTELUKAST [Concomitant]
     Active Substance: MONTELUKAST
  6. SPIRIVA [Concomitant]
     Active Substance: TIOTROPIUM BROMIDE MONOHYDRATE
     Indication: Product used for unknown indication
     Dosage: HAND CAP 18 MCG PEN MINI

REACTIONS (5)
  - Off label use [Unknown]
  - Dyspnoea [Unknown]
  - Upper limb fracture [Unknown]
  - Fall [Unknown]
  - Clumsiness [Unknown]
